FAERS Safety Report 5926000-8 (Version None)
Quarter: 2008Q3

REPORT INFORMATION
  Report Type: 
  Country: None (occurrence: None)
  Receive Date: 20080924
  Receipt Date: 20080530
  Transmission Date: 20090109
  Serious: Yes (Other)
  Sender: FDA-Public Use
  Company Number: US-WYE-H03817808

PATIENT
  Age: 49 Year
  Sex: Male
  Weight: 63.56 kg

DRUGS (4)
  1. TORISEL [Suspect]
     Indication: RENAL CELL CARCINOMA STAGE IV
     Dosage: 25 MG 1X PER 1 WK, INTRAVENOUS
     Route: 042
     Dates: start: 20080201
  2. METOPROLOL TARTRATE [Concomitant]
  3. IRON (IRON) [Concomitant]
  4. FLECAINIDE ACETATE [Concomitant]

REACTIONS (1)
  - DRUG EFFECT DECREASED [None]
